FAERS Safety Report 8010281-3 (Version None)
Quarter: 2011Q4

REPORT INFORMATION
  Report Type: 
  Country: None (occurrence: None)
  Receive Date: 20111228
  Receipt Date: 20111219
  Transmission Date: 20120403
  Serious: Yes (Other)
  Sender: FDA-Public Use
  Company Number: US-JNJFOC-20111100348

PATIENT
  Sex: Male
  Weight: 81.65 kg

DRUGS (3)
  1. REMICADE [Suspect]
     Route: 042
     Dates: start: 20110809
  2. REMICADE [Suspect]
     Route: 042
     Dates: start: 20110823
  3. REMICADE [Suspect]
     Indication: RHEUMATOID ARTHRITIS
     Route: 042
     Dates: start: 20110920

REACTIONS (3)
  - CARPAL TUNNEL SYNDROME [None]
  - SPINAL OSTEOARTHRITIS [None]
  - SPINAL COLUMN STENOSIS [None]
